FAERS Safety Report 10787833 (Version 2)
Quarter: 2015Q1

REPORT INFORMATION
  Report Type: Spontaneous
  Country: US (occurrence: US)
  Receive Date: 20150212
  Receipt Date: 20150227
  Transmission Date: 20150721
  Serious: Yes (Hospitalization, Other)
  Sender: FDA-Public Use
  Company Number: US-GILEAD-2015-0136440

PATIENT
  Age: 71 Year
  Sex: Female

DRUGS (1)
  1. LETAIRIS [Suspect]
     Active Substance: AMBRISENTAN
     Indication: PRODUCT USED FOR UNKNOWN INDICATION
     Dosage: 10 MG, UNK
     Route: 065
     Dates: start: 20130917, end: 20150223

REACTIONS (6)
  - Head injury [Recovered/Resolved]
  - Fall [Recovered/Resolved]
  - Haematemesis [Unknown]
  - Anaemia [Unknown]
  - Ulcer haemorrhage [Unknown]
  - Fatigue [Unknown]

NARRATIVE: CASE EVENT DATE: 20150206
